FAERS Safety Report 15754073 (Version 1)
Quarter: 2018Q4

REPORT INFORMATION
  Report Type: Spontaneous
  Country: US (occurrence: US)
  Receive Date: 20181223
  Receipt Date: 20181223
  Transmission Date: 20190205
  Serious: No
  Sender: FDA-Public Use
  Company Number: US-DRREDDYS-USA/USA/18/0105974

PATIENT
  Age: 40 Year
  Sex: Female
  Weight: 90.9 kg

DRUGS (2)
  1. SUMATRIPTAN. [Suspect]
     Active Substance: SUMATRIPTAN
     Indication: MIGRAINE
     Dosage: SUMATRIPTAN SUCCINATE INJECTION, USA AUTOINJECTION SYSTEM 6MG/0.5ML-DRL 2 CT
     Route: 058
     Dates: start: 20181203
  2. TRAMADOL. [Concomitant]
     Active Substance: TRAMADOL
     Indication: HEADACHE
     Route: 065

REACTIONS (2)
  - Product dose omission [Recovering/Resolving]
  - Product quality issue [Unknown]
